FAERS Safety Report 8112555-4 (Version None)
Quarter: 2012Q1

REPORT INFORMATION
  Report Type: 
  Country: None (occurrence: None)
  Receive Date: 20120203
  Receipt Date: 20120130
  Transmission Date: 20120608
  Serious: Yes (Other)
  Sender: FDA-Public Use
  Company Number: JP-ROCHE-1036037

PATIENT
  Age: 77 Year
  Sex: Male

DRUGS (3)
  1. PEGASYS [Suspect]
     Indication: HEPATITIS C
     Dosage: 20 DISCLINATION ADMINISTERING
     Route: 058
  2. EDARAVONE [Concomitant]
     Dosage: DOSAGE IS UNCERTAIN.
     Route: 042
  3. PLAVIX [Concomitant]
     Dosage: DOSAGE IS UNCERTAIN.
     Route: 048

REACTIONS (1)
  - CEREBRAL INFARCTION [None]
